FAERS Safety Report 12997955 (Version 2)
Quarter: 2017Q1

REPORT INFORMATION
  Report Type: Spontaneous
  Country: US (occurrence: US)
  Receive Date: 20161205
  Receipt Date: 20170314
  Transmission Date: 20170428
  Serious: Yes (Hospitalization)
  Sender: FDA-Public Use
  Company Number: US-JNJFOC-20161123632

PATIENT
  Age: 68 Year
  Sex: Female

DRUGS (2)
  1. IMBRUVICA [Suspect]
     Active Substance: IBRUTINIB
     Indication: CHRONIC LYMPHOCYTIC LEUKAEMIA
     Route: 048
     Dates: start: 201510, end: 20160928
  2. IMBRUVICA [Suspect]
     Active Substance: IBRUTINIB
     Indication: CHRONIC LYMPHOCYTIC LEUKAEMIA
     Route: 048
     Dates: start: 20160929

REACTIONS (5)
  - Mouth injury [Not Recovered/Not Resolved]
  - Endometrial adenocarcinoma [Unknown]
  - Palatal swelling [Recovered/Resolved]
  - Oral mucosal erythema [Not Recovered/Not Resolved]
  - Gingival recession [Unknown]

NARRATIVE: CASE EVENT DATE: 2016
